FAERS Safety Report 5833498-2 (Version None)
Quarter: 2008Q3

REPORT INFORMATION
  Report Type: 
  Country: None (occurrence: None)
  Receive Date: 20080805
  Receipt Date: 20080731
  Transmission Date: 20090109
  Serious: Yes (Disabling)
  Sender: FDA-Public Use
  Company Number: US-ASTRAZENECA-2008UW15059

PATIENT
  Age: 53 Year
  Sex: Male

DRUGS (1)
  1. NEXIUM [Suspect]
     Dosage: 40 MG
     Route: 048

REACTIONS (1)
  - OSTEONECROSIS [None]
